FAERS Safety Report 23595953 (Version 1)
Quarter: 2024Q1

REPORT INFORMATION
  Report Type: Spontaneous
  Country: US (occurrence: None)
  Receive Date: 20240304
  Receipt Date: 20240304
  Transmission Date: 20240409
  Serious: Yes (Other)
  Sender: FDA-Public Use
  Company Number: None

PATIENT
  Age: 47 Year
  Sex: Male

DRUGS (2)
  1. POMALYST [Suspect]
     Active Substance: POMALIDOMIDE
  2. POMALYST [Concomitant]
     Active Substance: POMALIDOMIDE
     Dates: start: 20230815, end: 20240216

REACTIONS (2)
  - Swelling face [None]
  - Hypersensitivity [None]

NARRATIVE: CASE EVENT DATE: 20240220
